FAERS Safety Report 8490959-8 (Version None)
Quarter: 2012Q3

REPORT INFORMATION
  Report Type: 
  Country: None (occurrence: None)
  Receive Date: 20120706
  Receipt Date: 20120626
  Transmission Date: 20120928
  Serious: Yes (Other)
  Sender: FDA-Public Use
  Company Number: BR-ACCORD-014004

PATIENT
  Age: 58 Year
  Sex: Male
  Weight: 48.8 kg

DRUGS (7)
  1. RANITIDINE [Concomitant]
     Indication: CHEMOTHERAPY
     Route: 042
     Dates: start: 20120621, end: 20120621
  2. CISPLATIN [Concomitant]
     Dates: start: 20120621
  3. METOCLOPRAMIDE [Concomitant]
     Indication: CHEMOTHERAPY
     Route: 042
     Dates: start: 20120621, end: 20120621
  4. DIPHENHYDRAMINE HCL [Concomitant]
     Indication: CHEMOTHERAPY
     Route: 042
     Dates: start: 20120621, end: 20120621
  5. ONDANSETRON [Concomitant]
     Indication: CHEMOTHERAPY
     Route: 042
     Dates: start: 20120621, end: 20120621
  6. PACLITAXEL [Suspect]
     Indication: CHEMOTHERAPY
     Route: 042
     Dates: start: 20120621, end: 20120621
  7. DEXAMETHASONE SODIUM PHOSPHATE [Concomitant]
     Indication: CHEMOTHERAPY
     Route: 042
     Dates: start: 20120621, end: 20120621

REACTIONS (5)
  - DYSPNOEA [None]
  - TACHYCARDIA [None]
  - ABDOMINAL DISCOMFORT [None]
  - FLUSHING [None]
  - BACK PAIN [None]
